FAERS Safety Report 25468239 (Version 3)
Quarter: 2025Q2

REPORT INFORMATION
  Report Type: Spontaneous
  Country: US (occurrence: US)
  Receive Date: 20250623
  Receipt Date: 20250626
  Transmission Date: 20250717
  Serious: No
  Sender: TORRENT PHARMA INC.
  Company Number: US-TORRENT-00014369

PATIENT
  Sex: Female

DRUGS (1)
  1. DAPSONE [Suspect]
     Active Substance: DAPSONE
     Indication: Product used for unknown indication
     Route: 065

REACTIONS (6)
  - Skin burning sensation [Unknown]
  - Product label issue [Unknown]
  - Skin abrasion [Unknown]
  - Instillation site foreign body sensation [Unknown]
  - Therapy interrupted [Unknown]
  - Skin laceration [Unknown]

NARRATIVE: CASE EVENT DATE: 20250606
